FAERS Safety Report 8138322-3 (Version None)
Quarter: 2012Q1

REPORT INFORMATION
  Report Type: 
  Country: None (occurrence: None)
  Receive Date: 20120215
  Receipt Date: 20111003
  Transmission Date: 20120608
  Serious: No
  Sender: FDA-Public Use
  Company Number: US-SANOFI-AVENTIS-2011SA067354

PATIENT
  Age: 75 Year
  Sex: Male

DRUGS (2)
  1. ALL OTHER THERAPEUTIC PRODUCTS [Suspect]
     Route: 065
     Dates: end: 20110101
  2. GLYBURIDE [Suspect]
     Route: 065
     Dates: end: 20110101

REACTIONS (2)
  - OEDEMA PERIPHERAL [None]
  - RASH [None]
